FAERS Safety Report 19047465 (Version 1)
Quarter: 2021Q1

REPORT INFORMATION
  Report Type: Spontaneous
  Country: US (occurrence: US)
  Receive Date: 20210323
  Receipt Date: 20210323
  Transmission Date: 20210420
  Serious: No
  Sender: FDA-Public Use
  Company Number: US-BAUSCH-BL-2021-009573

PATIENT
  Age: 65 Year
  Sex: Female

DRUGS (1)
  1. XIFAXAN [Suspect]
     Active Substance: RIFAXIMIN
     Indication: IRRITABLE BOWEL SYNDROME
     Route: 065

REACTIONS (4)
  - Inability to afford medication [Unknown]
  - Symptom recurrence [Unknown]
  - Insurance issue [Unknown]
  - Irritable bowel syndrome [Unknown]
